FAERS Safety Report 23441016 (Version 1)
Quarter: 2024Q1

REPORT INFORMATION
  Report Type: Spontaneous
  Country: US (occurrence: US)
  Receive Date: 20240125
  Receipt Date: 20240125
  Transmission Date: 20240410
  Serious: Yes (Other)
  Sender: FDA-Public Use
  Company Number: US-GSKCCFUS-Case-01910611_AE-106458

PATIENT

DRUGS (1)
  1. TRELEGY ELLIPTA [Suspect]
     Active Substance: FLUTICASONE FUROATE\UMECLIDINIUM BROMIDE\VILANTEROL TRIFENATATE
     Indication: Product used for unknown indication
     Dosage: UNK

REACTIONS (6)
  - Glaucoma [Unknown]
  - Blindness [Unknown]
  - Blindness unilateral [Unknown]
  - Accident [Unknown]
  - Limb injury [Unknown]
  - Wrong technique in device usage process [Unknown]
